FAERS Safety Report 23872283 (Version 3)
Quarter: 2025Q1

REPORT INFORMATION
  Report Type: Spontaneous
  Country: IN (occurrence: IN)
  Receive Date: 20240520
  Receipt Date: 20250217
  Transmission Date: 20250408
  Serious: Yes (Other)
  Sender: SANDOZ
  Company Number: IN-SANDOZ-SDZ2024IN049430

PATIENT
  Sex: Male

DRUGS (1)
  1. TACROLIMUS [Suspect]
     Active Substance: TACROLIMUS
     Indication: Renal transplant
     Dosage: 1 MG, BID
     Route: 048

REACTIONS (15)
  - Obstructive pancreatitis [Unknown]
  - Cholecystitis [Unknown]
  - Meningitis [Unknown]
  - Cardiac failure acute [Unknown]
  - Sepsis [Unknown]
  - Hypokalaemia [Unknown]
  - Oesophageal candidiasis [Unknown]
  - Acute kidney injury [Unknown]
  - Metabolic encephalopathy [Unknown]
  - Cataract [Unknown]
  - Paraesthesia [Unknown]
  - Klebsiella infection [Unknown]
  - Escherichia infection [Unknown]
  - Hypertension [Unknown]
  - Headache [Unknown]
